FAERS Safety Report 6110324-8 (Version None)
Quarter: 2009Q1

REPORT INFORMATION
  Report Type: 
  Country: None (occurrence: None)
  Receive Date: 20090310
  Receipt Date: 20090226
  Transmission Date: 20090719
  Serious: Yes (Hospitalization)
  Sender: FDA-Public Use
  Company Number: NO-PFIZER INC-2009176567

PATIENT

DRUGS (1)
  1. SOMATROPIN [Suspect]
     Indication: PRADER-WILLI SYNDROME
     Dosage: 4.2 MG, WEEKLY
     Dates: start: 20030606

REACTIONS (1)
  - ABSCESS LIMB [None]
